FAERS Safety Report 9047016 (Version 1)
Quarter: 2013Q1

REPORT INFORMATION
  Report Type: Spontaneous
  Country: IN (occurrence: IN)
  Receive Date: 20130204
  Receipt Date: 20130204
  Transmission Date: 20140127
  Serious: Yes (Other)
  Sender: FDA-Public Use
  Company Number: IN-009507513-1301IND011001

PATIENT
  Age: 69 Year
  Sex: 0

DRUGS (1)
  1. JANUVIA [Suspect]
     Dosage: UNK, QD

REACTIONS (3)
  - Post procedural complication [Unknown]
  - Eye operation [Unknown]
  - Eye infection [Unknown]
